FAERS Safety Report 12362992 (Version 2)
Quarter: 2016Q2

REPORT INFORMATION
  Report Type: Report from Study
  Country: JP (occurrence: JP)
  Receive Date: 20160512
  Receipt Date: 20160609
  Transmission Date: 20160815
  Serious: Yes (Death, Other)
  Sender: FDA-Public Use
  Company Number: JP-GILEAD-2016-0211818

PATIENT
  Age: 63 Year
  Sex: Female
  Weight: 40 kg

DRUGS (38)
  1. MIYA-BM [Concomitant]
     Active Substance: CLOSTRIDIUM BUTYRICUM SPORES STRAIN M-55
     Dosage: UNK
     Dates: start: 20131107, end: 20131129
  2. AZUNOL                             /00317302/ [Concomitant]
     Dosage: UNK
     Dates: start: 20131121, end: 20131129
  3. CRAVIT [Concomitant]
     Active Substance: LEVOFLOXACIN
     Dosage: UNK
     Dates: start: 20131121, end: 20131129
  4. FERROMIA (JAPAN) [Concomitant]
     Dosage: UNK
     Dates: start: 20131107, end: 20131129
  5. RISPERDAL [Concomitant]
     Active Substance: RISPERIDONE
     Dosage: UNK
     Dates: start: 20131107, end: 20131129
  6. TAKEPRON [Concomitant]
     Active Substance: LANSOPRAZOLE
     Dosage: UNK
     Dates: start: 20131121, end: 20131129
  7. CALONAL [Concomitant]
     Active Substance: ACETAMINOPHEN
     Dosage: UNK
     Dates: start: 20131130, end: 20131202
  8. NEXIUM [Concomitant]
     Active Substance: ESOMEPRAZOLE MAGNESIUM
     Dosage: UNK
     Dates: start: 20131217, end: 20140107
  9. AMBRISENTAN [Suspect]
     Active Substance: AMBRISENTAN
     Indication: PULMONARY ARTERIAL HYPERTENSION
     Dosage: 10 MG, QD
     Route: 048
     Dates: start: 20131121, end: 20140107
  10. MAGNESIUM OXIDE. [Concomitant]
     Active Substance: MAGNESIUM OXIDE
     Dosage: UNK
     Dates: start: 20131107, end: 20131129
  11. NERIPROCT [Concomitant]
     Dosage: UNK
     Dates: start: 20131107, end: 20131129
  12. BREDININ [Concomitant]
     Active Substance: MIZORIBINE
     Indication: PULMONARY ARTERIAL HYPERTENSION
     Dosage: UNK
     Dates: start: 20131121, end: 20140107
  13. FUROSEMIDE. [Concomitant]
     Active Substance: FUROSEMIDE
     Dosage: UNK
     Dates: start: 20131217, end: 20131231
  14. TAKEPRON OD TABLETS [Concomitant]
     Dosage: UNK
     Dates: start: 20131121, end: 20131129
  15. CRAVIT OPHTHALMIC SOLUTION [Concomitant]
     Dosage: UNK
     Dates: start: 20131121, end: 20131129
  16. ZITHROMAC SR [Concomitant]
     Active Substance: AZITHROMYCIN DIHYDRATE
     Dosage: UNK
     Dates: start: 20131130, end: 20131130
  17. FERROMIA [Concomitant]
     Active Substance: FERROUS CITRATE
     Dosage: UNK
     Dates: start: 20131107, end: 20131129
  18. ASPARA POTASSIUM [Concomitant]
     Active Substance: POTASSIUM ASPARTATE
     Dosage: UNK
     Dates: start: 20131107, end: 20131129
  19. ALDACTONE A [Concomitant]
     Active Substance: SPIRONOLACTONE
     Dosage: UNK
     Dates: start: 20131107, end: 20131129
  20. AZUNOL OINTMENT [Concomitant]
     Dosage: UNK
     Dates: start: 20131121, end: 20131129
  21. DOGMATYL [Concomitant]
     Active Substance: SULPIRIDE
     Dosage: UNK
     Dates: start: 20131107, end: 20131129
  22. ZOSYN [Concomitant]
     Active Substance: PIPERACILLIN SODIUM\TAZOBACTAM SODIUM
     Dosage: UNK
     Dates: start: 20131130, end: 20131207
  23. NEXIUM [Concomitant]
     Active Substance: ESOMEPRAZOLE MAGNESIUM
     Dosage: UNK
     Dates: start: 20131217, end: 20140107
  24. PREDNISOLONE. [Concomitant]
     Active Substance: PREDNISOLONE
     Indication: PULMONARY ARTERIAL HYPERTENSION
     Dosage: UNK
     Dates: start: 20131107, end: 20140107
  25. ROZEREM [Concomitant]
     Active Substance: RAMELTEON
     Dosage: UNK
     Dates: start: 20131107, end: 20131129
  26. DIART [Concomitant]
     Active Substance: AZOSEMIDE
     Dosage: UNK
     Dates: start: 20131107, end: 20131129
  27. DIGOSIN [Concomitant]
     Active Substance: DIGOXIN
     Dosage: UNK
     Dates: start: 20131130, end: 20131204
  28. WARFARIN POTASSIUM [Concomitant]
     Active Substance: WARFARIN POTASSIUM
     Dosage: UNK
     Dates: start: 20131107, end: 20140107
  29. ENSURE [Concomitant]
     Active Substance: AMINO ACIDS\DEXTROSE\ELECTROLYTES NOS\SOYBEAN OIL\VITAMINS
     Dosage: UNK
     Dates: start: 20131107, end: 20131129
  30. RESTAMIN A KOWA [Concomitant]
     Dosage: UNK
     Dates: start: 20131121, end: 20131129
  31. REVATIO [Concomitant]
     Active Substance: SILDENAFIL CITRATE
     Dosage: UNK
     Dates: start: 20131121, end: 20140107
  32. FAMOTIDINE. [Concomitant]
     Active Substance: FAMOTIDINE
     Dosage: UNK
     Dates: start: 20131205, end: 20131207
  33. FUROSEMIDE. [Concomitant]
     Active Substance: FUROSEMIDE
     Dosage: UNK
     Dates: start: 20140101, end: 20140108
  34. ENSURE H [Concomitant]
     Dosage: UNK
     Dates: start: 20131107, end: 20131129
  35. RESTAMIN KOWA CREAM 1% [Concomitant]
     Dosage: UNK
     Dates: start: 20131121, end: 20131129
  36. HERBESSER [Concomitant]
     Active Substance: DILTIAZEM HYDROCHLORIDE
     Dosage: UNK
     Dates: start: 20131107, end: 20140107
  37. ZITHROMAC [Concomitant]
     Active Substance: AZITHROMYCIN DIHYDRATE
     Dosage: UNK
     Dates: start: 20131130, end: 20131130
  38. NERIPROCT SUPPOSITORY [Concomitant]
     Dosage: UNK
     Dates: start: 20131107, end: 20131129

REACTIONS (1)
  - Pneumonia bacterial [Fatal]

NARRATIVE: CASE EVENT DATE: 20131226
